FAERS Safety Report 25690355 (Version 1)
Quarter: 2025Q3

REPORT INFORMATION
  Report Type: Spontaneous
  Country: US (occurrence: None)
  Receive Date: 20250816
  Receipt Date: 20250816
  Transmission Date: 20251021
  Serious: No
  Sender: FDA-CTU
  Company Number: None

PATIENT
  Age: 17 Year
  Sex: Male
  Weight: 52.3 kg

DRUGS (4)
  1. CYCLOPHOSPHAMIDE [Suspect]
     Active Substance: CYCLOPHOSPHAMIDE
  2. DACTINOMYCIN [Suspect]
     Active Substance: DACTINOMYCIN
  3. VINORELBINE TARTRATE [Suspect]
     Active Substance: VINORELBINE TARTRATE
  4. VINCRISTINE [Suspect]
     Active Substance: VINCRISTINE

REACTIONS (3)
  - Peripheral motor neuropathy [None]
  - Peripheral sensory neuropathy [None]
  - Therapy interrupted [None]

NARRATIVE: CASE EVENT DATE: 20250523
